FAERS Safety Report 7782557-6 (Version None)
Quarter: 2011Q3

REPORT INFORMATION
  Report Type: 
  Country: None (occurrence: None)
  Receive Date: 20110927
  Receipt Date: 20110927
  Transmission Date: 20111222
  Serious: Yes (Life-Threatening, Hospitalization, Other)
  Sender: FDA-Public Use
  Company Number: None

PATIENT
  Age: 75 Year
  Sex: Female
  Weight: 100.2449 kg

DRUGS (2)
  1. MOBIC [Suspect]
     Dates: start: 20110503
  2. MOBIC [Suspect]
     Indication: PAIN
     Dosage: 1 TABLET EVERY DAY
     Dates: start: 20110610

REACTIONS (10)
  - JOINT SWELLING [None]
  - URTICARIA [None]
  - GASTRIC ULCER [None]
  - ABDOMINAL PAIN UPPER [None]
  - DYSPNOEA [None]
  - BLOOD TEST ABNORMAL [None]
  - OEDEMA PERIPHERAL [None]
  - BLOOD COUNT ABNORMAL [None]
  - CHEST DISCOMFORT [None]
  - GASTROINTESTINAL PAIN [None]
